FAERS Safety Report 4315496-3 (Version None)
Quarter: 2004Q1

REPORT INFORMATION
  Report Type: 
  Country: None (occurrence: None)
  Receive Date: 20040309
  Receipt Date: 20040224
  Transmission Date: 20041129
  Serious: Yes (Other)
  Sender: FDA-Public Use
  Company Number: US_0402101127

PATIENT
  Age: 36 Year
  Sex: Male
  Weight: 75 kg

DRUGS (8)
  1. HUMULIN N [Suspect]
     Indication: DIABETES MELLITUS
     Dates: start: 19820101, end: 20000101
  2. HUMULIN R [Suspect]
     Indication: DIABETES MELLITUS
     Dates: start: 19820101, end: 20000101
  3. HUMALOG [Suspect]
     Indication: DIABETES MELLITUS
     Dates: start: 20000101
  4. LENTE INSULIN [Concomitant]
  5. INSULIN HUMAN ZINC SUSPENSION [Concomitant]
  6. DRONABINOL [Concomitant]
  7. EPOGEN [Concomitant]
  8. FERROUS SULFATE TAB [Concomitant]

REACTIONS (10)
  - ANAEMIA [None]
  - CARPAL TUNNEL SYNDROME [None]
  - CORONARY ARTERY DISEASE [None]
  - DIABETIC GASTROPARESIS [None]
  - DIABETIC RETINOPATHY [None]
  - HYPERTENSION [None]
  - NEUROPATHY [None]
  - RENAL FAILURE [None]
  - THYROID DISORDER [None]
  - WEIGHT FLUCTUATION [None]
